FAERS Safety Report 14353123 (Version 1)
Quarter: 2018Q1

REPORT INFORMATION
  Report Type: Spontaneous
  Country: CA (occurrence: CA)
  Receive Date: 20180104
  Receipt Date: 20180104
  Transmission Date: 20180509
  Serious: Yes (Life-Threatening, Hospitalization, Other)
  Sender: FDA-Public Use
  Company Number: CA-B.I. PHARMACEUTICALS,INC./RIDGEFIELD-2018-BI-000611

PATIENT
  Age: 56 Year
  Sex: Male

DRUGS (4)
  1. JARDIANCE [Suspect]
     Active Substance: EMPAGLIFLOZIN
     Indication: TYPE 2 DIABETES MELLITUS
     Route: 048
  2. ATORVASTATIN CALCIUM. [Concomitant]
     Active Substance: ATORVASTATIN CALCIUM
     Indication: PRODUCT USED FOR UNKNOWN INDICATION
     Route: 065
  3. GLICLAZIDE [Concomitant]
     Active Substance: GLICLAZIDE
     Indication: PRODUCT USED FOR UNKNOWN INDICATION
     Route: 065
  4. METFORMIN [Concomitant]
     Active Substance: METFORMIN HYDROCHLORIDE
     Indication: PRODUCT USED FOR UNKNOWN INDICATION
     Route: 065

REACTIONS (16)
  - Endocarditis [Recovering/Resolving]
  - Klebsiella bacteraemia [Recovering/Resolving]
  - Retroperitoneal infection [Recovering/Resolving]
  - Abdominal abscess [Recovering/Resolving]
  - Klebsiella infection [Recovering/Resolving]
  - Urinary tract infection [Recovering/Resolving]
  - Diabetic ketoacidosis [Recovering/Resolving]
  - Infective aneurysm [Recovering/Resolving]
  - Retroperitoneal abscess [Recovering/Resolving]
  - Abscess [Recovering/Resolving]
  - Aortic stent insertion [Recovering/Resolving]
  - Cardiac valve vegetation [Recovering/Resolving]
  - Perinephric abscess [Recovering/Resolving]
  - Pulmonary embolism [Recovering/Resolving]
  - Scrotal swelling [Recovering/Resolving]
  - Septic embolus [Recovering/Resolving]
